FAERS Safety Report 20762365 (Version 1)
Quarter: 2022Q2

REPORT INFORMATION
  Report Type: Spontaneous
  Country: RU (occurrence: None)
  Receive Date: 20220428
  Receipt Date: 20220428
  Transmission Date: 20220720
  Serious: Yes (Other)
  Sender: FDA-Public Use
  Company Number: RU-ROCHE-3081047

PATIENT
  Age: 57 Year
  Sex: Female

DRUGS (9)
  1. RITUXIMAB [Suspect]
     Active Substance: RITUXIMAB
     Indication: Follicular lymphoma
     Dosage: RITUXIMAB MONOTHERAPY IN MAINTENANCE REGIMEN UNTIL 2011.
     Route: 065
  2. OBINUTUZUMAB [Suspect]
     Active Substance: OBINUTUZUMAB
     Indication: Follicular lymphoma
     Dosage: 1,000 MG IV INFUSION ON DAY 1 OF EACH 28-DAY CYCLE
     Route: 042
     Dates: start: 202105
  3. OBINUTUZUMAB [Suspect]
     Active Substance: OBINUTUZUMAB
     Dosage: OBINUTUZUMAB 1,000 MG IV INFUSION EVERY 8 WEEKS
     Route: 042
     Dates: start: 202112
  4. DOXORUBICIN [Suspect]
     Active Substance: DOXORUBICIN
     Indication: Follicular lymphoma
     Route: 065
  5. VINCRISTINE [Suspect]
     Active Substance: VINCRISTINE
     Indication: Follicular lymphoma
     Route: 065
  6. PREDNISOLONE [Suspect]
     Active Substance: PREDNISOLONE
     Indication: Follicular lymphoma
     Route: 065
  7. BENDAMUSTINE [Suspect]
     Active Substance: BENDAMUSTINE
     Indication: Follicular lymphoma
     Route: 065
  8. LENALIDOMIDE [Suspect]
     Active Substance: LENALIDOMIDE
     Indication: Follicular lymphoma
     Dosage: (20 MG PO DAILY ON DAYS 2 THROUGH 22 OF EACH 28-DAY CYCLE)
     Route: 048
     Dates: start: 202105
  9. LENALIDOMIDE [Suspect]
     Active Substance: LENALIDOMIDE
     Dosage: LENALIDOMIDE 10 MG PO DAILY ON DAYS 2
     Route: 048
     Dates: start: 202112

REACTIONS (7)
  - Follicular lymphoma [Unknown]
  - Neoplasm progression [Unknown]
  - Neutropenia [Unknown]
  - Pain [Unknown]
  - Urticaria [Unknown]
  - Dermatitis allergic [Unknown]
  - Off label use [Unknown]
